FAERS Safety Report 25318802 (Version 4)
Quarter: 2025Q3

REPORT INFORMATION
  Report Type: Report from Study
  Country: US (occurrence: US)
  Receive Date: 20250515
  Receipt Date: 20250707
  Transmission Date: 20251020
  Serious: Yes (Hospitalization)
  Sender: PFIZER
  Company Number: US-PFIZER INC-PV202400119953

PATIENT
  Age: 82 Year
  Sex: Female
  Weight: 53.5 kg

DRUGS (31)
  1. VYNDAMAX [Suspect]
     Active Substance: TAFAMIDIS
     Indication: Amyloidosis
     Dosage: 61 MG, DAILY
     Route: 048
     Dates: start: 20240820
  2. VYNDAMAX [Suspect]
     Active Substance: TAFAMIDIS
     Dosage: TAKE ONE 61MG CAP BY MOUTH DAILY
     Route: 048
  3. VYNDAMAX [Suspect]
     Active Substance: TAFAMIDIS
     Dosage: 61 MG, DAILY
     Route: 048
     Dates: end: 202412
  4. VYNDAMAX [Suspect]
     Active Substance: TAFAMIDIS
     Dosage: 61 MG, DAILY
     Route: 048
     Dates: end: 202502
  5. VYNDAMAX [Suspect]
     Active Substance: TAFAMIDIS
     Dosage: TAKE 1 CAPSULE (61MG) BY MOUTH DAILY
     Route: 048
  6. ALBUTEROL [Concomitant]
     Active Substance: ALBUTEROL
  7. ALENDRONATE [Concomitant]
     Active Substance: ALENDRONATE SODIUM
  8. ANORO ELLIPTA [Concomitant]
     Active Substance: UMECLIDINIUM BROMIDE\VILANTEROL TRIFENATATE
  9. ASPIRIN [Concomitant]
     Active Substance: ASPIRIN
  10. ASPIRIN [Concomitant]
     Active Substance: ASPIRIN
  11. ATORVASTATIN [Concomitant]
     Active Substance: ATORVASTATIN
  12. CINACALCET [Concomitant]
     Active Substance: CINACALCET
  13. CLOPIDOGREL [Concomitant]
     Active Substance: CLOPIDOGREL BISULFATE
  14. DICYCLOMINE [Concomitant]
     Active Substance: DICYCLOMINE HYDROCHLORIDE
  15. ELIQUIS [Concomitant]
     Active Substance: APIXABAN
  16. ESCITALOPRAM [Concomitant]
     Active Substance: ESCITALOPRAM OXALATE
  17. GABAPENTIN [Concomitant]
     Active Substance: GABAPENTIN
  18. JARDIANCE [Concomitant]
     Active Substance: EMPAGLIFLOZIN
  19. LOSARTAN [Concomitant]
     Active Substance: LOSARTAN
  20. LOSARTAN POTASSIUM [Concomitant]
     Active Substance: LOSARTAN POTASSIUM
  21. METHOCARBAMOL [Concomitant]
     Active Substance: METHOCARBAMOL
  22. METOPROLOL [Concomitant]
     Active Substance: METOPROLOL
  23. METOPROLOL SUCCINATE [Concomitant]
     Active Substance: METOPROLOL SUCCINATE
  24. NIFEDIPINE [Concomitant]
     Active Substance: NIFEDIPINE
  25. NIFEDIPINE [Concomitant]
     Active Substance: NIFEDIPINE
  26. SPIRONOLACTONE [Concomitant]
     Active Substance: SPIRONOLACTONE
  27. TORSEMIDE [Concomitant]
     Active Substance: TORSEMIDE
  28. TORSEMIDE [Concomitant]
     Active Substance: TORSEMIDE
  29. VITAMIN D NOS [Concomitant]
     Active Substance: CHOLECALCIFEROL\ERGOCALCIFEROL
  30. DICYCLOMINE [Concomitant]
     Active Substance: DICYCLOMINE HYDROCHLORIDE
  31. TERBINAFINE [Concomitant]
     Active Substance: TERBINAFINE

REACTIONS (9)
  - Diarrhoea [Recovered/Resolved]
  - Fall [Unknown]
  - Dyspnoea [Unknown]
  - Asthma [Unknown]
  - Pleural effusion [Unknown]
  - Fluid retention [Unknown]
  - Peripheral swelling [Unknown]
  - Weight decreased [Unknown]
  - Product dose omission issue [Unknown]

NARRATIVE: CASE EVENT DATE: 20240820
